FAERS Safety Report 7168968 (Version 2)
Quarter: 2020Q1

REPORT INFORMATION
  Report Type: Spontaneous
  Country: US (occurrence: US)
  Receive Date: 20091106
  Receipt Date: 20200220
  Transmission Date: 20200409
  Serious: Yes (Other)
  Sender: FDA-Public Use
  Company Number: US-PFIZER INC-2009289749

PATIENT
  Age: 59 Year
  Sex: Male

DRUGS (4)
  1. PREDNISONE. [Concomitant]
     Active Substance: PREDNISONE
  2. TACROLIMUS. [Concomitant]
     Active Substance: TACROLIMUS
  3. VORICONAZOLE. [Suspect]
     Active Substance: VORICONAZOLE
     Indication: MYCETOMA MYCOTIC
     Dosage: 200 MG, 2X/DAY
  4. MYCOPHENOLATE MOFETIL. [Concomitant]
     Active Substance: MYCOPHENOLATE MOFETIL

REACTIONS (1)
  - Periostitis [Recovered/Resolved]
